FAERS Safety Report 21834055 (Version 1)
Quarter: 2023Q1

REPORT INFORMATION
  Report Type: Spontaneous
  Country: US (occurrence: None)
  Receive Date: 20230108
  Receipt Date: 20230108
  Transmission Date: 20230417
  Serious: No
  Sender: FDA-Public Use
  Company Number: US-ROCHE-3077643

PATIENT
  Sex: Male

DRUGS (2)
  1. HEMLIBRA [Suspect]
     Active Substance: EMICIZUMAB-KXWH
     Indication: Factor VIII deficiency
     Dosage: DOSE:220 MG(1.46 ML)?STRENGTH:105 MG/7 ML
     Route: 058
     Dates: start: 20201124
  2. HEMLIBRA [Suspect]
     Active Substance: EMICIZUMAB-KXWH
     Dosage: STRENGTH:60 MG/0.4 ML
     Route: 058
     Dates: start: 20201124

REACTIONS (1)
  - Weight decreased [Unknown]
